FAERS Safety Report 6070130-X (Version None)
Quarter: 2009Q1

REPORT INFORMATION
  Report Type: 
  Country: None (occurrence: None)
  Receive Date: 20090209
  Receipt Date: 20090108
  Transmission Date: 20090719
  Serious: No
  Sender: FDA-Public Use
  Company Number: US-BAYER-200910091BCC

PATIENT
  Age: 22 Year
  Sex: Male
  Weight: 113 kg

DRUGS (1)
  1. ALEVE (CAPLET) [Suspect]
     Indication: HEADACHE
     Dosage: UNIT DOSE: 220 MG
     Dates: start: 20090108

REACTIONS (2)
  - FEELING ABNORMAL [None]
  - SOMNOLENCE [None]
